FAERS Safety Report 24266909 (Version 1)
Quarter: 2024Q3

REPORT INFORMATION
  Report Type: Spontaneous
  Country: GB (occurrence: GB)
  Receive Date: 20240830
  Receipt Date: 20240830
  Transmission Date: 20241017
  Serious: Yes (Other)
  Sender: DR REDDYS
  Company Number: None

PATIENT
  Age: 75 Year
  Sex: Female

DRUGS (3)
  1. ZOLEDRONIC ACID [Suspect]
     Active Substance: ZOLEDRONIC ACID
     Indication: Product used for unknown indication
     Dosage: ZOLEDRONIC 5 MG INJECTION
     Dates: start: 20230619
  2. ZOLEDRONIC ACID [Suspect]
     Active Substance: ZOLEDRONIC ACID
     Dosage: ZOLEDRONIC 5 MG INJECTION
     Dates: start: 20231219
  3. ZOLEDRONIC ACID [Suspect]
     Active Substance: ZOLEDRONIC ACID
     Dosage: DURING 2016, 2017 AND 2018, THREE INFUSIONS

REACTIONS (11)
  - Confusional state [Unknown]
  - Agitation [Unknown]
  - Dizziness [Unknown]
  - Alopecia [Unknown]
  - Visual impairment [Unknown]
  - Asthenia [Unknown]
  - Dental discomfort [Unknown]
  - Myalgia [Unknown]
  - Arthralgia [Unknown]
  - Arthralgia [Unknown]
  - Fracture [Unknown]
